FAERS Safety Report 6444899-6 (Version None)
Quarter: 2009Q4

REPORT INFORMATION
  Report Type: 
  Country: None (occurrence: None)
  Receive Date: 20091117
  Receipt Date: 20091117
  Transmission Date: 20100525
  Serious: No
  Sender: FDA-Public Use
  Company Number: None

PATIENT
  Sex: Female
  Weight: 72.5755 kg

DRUGS (1)
  1. ALPHAGAN P [Suspect]
     Indication: GLAUCOMA
     Dosage: 1 DRP. EACH EYE TWICE DAILY
     Route: 047
     Dates: start: 20090401, end: 20090722

REACTIONS (21)
  - AMNESIA [None]
  - ASTHENIA [None]
  - BLOOD PRESSURE INCREASED [None]
  - CONSTIPATION [None]
  - DIZZINESS [None]
  - DRY MOUTH [None]
  - EYELID OEDEMA [None]
  - FATIGUE [None]
  - FOREIGN BODY IN EYE [None]
  - INTRAOCULAR PRESSURE INCREASED [None]
  - LIP SWELLING [None]
  - MYALGIA [None]
  - NASAL DRYNESS [None]
  - PALPITATIONS [None]
  - PHARYNGEAL OEDEMA [None]
  - SWELLING FACE [None]
  - SWOLLEN TONGUE [None]
  - URTICARIA [None]
  - VISION BLURRED [None]
  - VISUAL FIELD DEFECT [None]
  - VISUAL IMPAIRMENT [None]
